FAERS Safety Report 8477357-8 (Version None)
Quarter: 2012Q2

REPORT INFORMATION
  Report Type: 
  Country: None (occurrence: None)
  Receive Date: 20120620
  Receipt Date: 20120608
  Transmission Date: 20120825
  Serious: Yes (Hospitalization, Other)
  Sender: FDA-Public Use
  Company Number: DSA_47378_2011

PATIENT
  Sex: Female
  Weight: 63.5036 kg

DRUGS (29)
  1. BYSTOLIC [Suspect]
     Indication: PRODUCT USED FOR UNKNOWN INDICATION
     Dosage: (DF)
  2. MACROBID [Suspect]
     Indication: PRODUCT USED FOR UNKNOWN INDICATION
     Dosage: (DF)
  3. LISINOPRIL [Suspect]
     Indication: PRODUCT USED FOR UNKNOWN INDICATION
     Dosage: (DF)
  4. LEVOTHYROXINE SODIUM [Concomitant]
  5. LOSARTAN POTASSIUM [Suspect]
     Indication: PRODUCT USED FOR UNKNOWN INDICATION
     Dosage: (DF)
  6. LEVAQUIN [Suspect]
     Indication: PRODUCT USED FOR UNKNOWN INDICATION
     Dosage: (DF)
  7. CARDIZEM [Suspect]
     Indication: PRODUCT USED FOR UNKNOWN INDICATION
     Dosage: (DF)
  8. CARDIZEM [Suspect]
     Indication: FLUSHING
     Dosage: (DF)
  9. CIPRO [Suspect]
     Indication: PRODUCT USED FOR UNKNOWN INDICATION
     Dosage: (DF)
  10. DEPAKOTE [Suspect]
     Indication: CONVULSION
     Dosage: (DF)
     Dates: start: 19950101, end: 20040101
  11. NORVASC [Suspect]
     Indication: HYPERTENSION
     Dosage: SEE IMAGE
     Route: 048
     Dates: start: 20100719, end: 20110721
  12. NORVASC [Suspect]
     Indication: HYPERTENSION
     Dosage: SEE IMAGE
     Route: 048
     Dates: start: 20100722
  13. NORVASC [Suspect]
     Indication: HYPERTENSION
     Dosage: SEE IMAGE
     Route: 048
     Dates: start: 19940101
  14. NORVASC [Suspect]
     Indication: HYPERTENSION
     Dosage: SEE IMAGE
     Route: 048
     Dates: start: 20100101
  15. NORVASC [Suspect]
     Indication: HYPERTENSION
     Dosage: SEE IMAGE
     Route: 048
     Dates: start: 19970101
  16. HYDROCHLOROTHIAZIDE [Suspect]
     Indication: PRODUCT USED FOR UNKNOWN INDICATION
     Dosage: (DF)
     Dates: start: 20110307
  17. XANAX [Suspect]
     Indication: PRODUCT USED FOR UNKNOWN INDICATION
     Dosage: (0.5 DOSAGE FORM DAILY)
  18. CLONIDINE [Concomitant]
  19. AVAPRO [Suspect]
     Indication: HYPERTENSION
     Dosage: (DF)
  20. BENICAR [Suspect]
     Indication: HYPERTENSION
     Dosage: (DF ORAL)
     Route: 048
     Dates: start: 20070101
  21. BACTRIM [Suspect]
     Indication: PRODUCT USED FOR UNKNOWN INDICATION
     Dosage: (DF)
  22. DIOVAN [Suspect]
     Indication: PRODUCT USED FOR UNKNOWN INDICATION
     Dosage: (DF)
  23. FUROSEMIDE [Suspect]
     Indication: PRODUCT USED FOR UNKNOWN INDICATION
     Dosage: (DF)
  24. ATACAND [Suspect]
     Indication: HYPERTENSION
     Dosage: (32 MG QD ORAL)
     Route: 048
     Dates: start: 19950101
  25. LIDOCAINE HYDROCHLORIDE [Suspect]
     Indication: PARONYCHIA
     Dosage: (DF; ONE TIME)
     Dates: start: 20100513, end: 20100513
  26. DILANTIN [Suspect]
     Indication: CONVULSION
     Dosage: (DF)
     Dates: start: 19950101
  27. REGLAN [Suspect]
     Indication: PRODUCT USED FOR UNKNOWN INDICATION
     Dosage: (DF)
  28. TOPROL-XL [Suspect]
     Indication: HEART RATE ABNORMAL
     Dosage: (50 MG BID)
  29. NOPALEA - PLANT ALKALOIDS AND OTHER NATURAL PRODUCTS [Suspect]
     Dosage: (DF)
     Dates: start: 20100101

REACTIONS (27)
  - BLOOD PRESSURE INCREASED [None]
  - GASTRIC DISORDER [None]
  - PALPITATIONS [None]
  - BLOOD COUNT ABNORMAL [None]
  - LUNG NEOPLASM [None]
  - KIDNEY INFECTION [None]
  - ANAEMIA [None]
  - WEIGHT DECREASED [None]
  - ARTERIAL OCCLUSIVE DISEASE [None]
  - GALLBLADDER DISORDER [None]
  - LOSS OF CONSCIOUSNESS [None]
  - BURNING SENSATION [None]
  - HEADACHE [None]
  - MICTURITION FREQUENCY DECREASED [None]
  - ABDOMINAL PAIN [None]
  - ERYTHEMA [None]
  - CYSTITIS [None]
  - CARBUNCLE [None]
  - URINARY INCONTINENCE [None]
  - CHOLECYSTECTOMY [None]
  - DIZZINESS [None]
  - FULL BLOOD COUNT DECREASED [None]
  - CEREBROVASCULAR ACCIDENT [None]
  - HYPOAESTHESIA [None]
  - TOE OPERATION [None]
  - HAEMOGLOBIN DECREASED [None]
  - BLOOD TRIGLYCERIDES INCREASED [None]
